FAERS Safety Report 5900794-X (Version None)
Quarter: 2008Q3

REPORT INFORMATION
  Report Type: 
  Country: None (occurrence: None)
  Receive Date: 20080929
  Receipt Date: 20080923
  Transmission Date: 20090109
  Serious: Yes (Death, Hospitalization)
  Sender: FDA-Public Use
  Company Number: US-JNJFOC-20080905470

PATIENT
  Age: 8 Month

DRUGS (3)
  1. NESIRITIDE [Suspect]
     Indication: CARDIAC FAILURE
     Route: 042
  2. FUROSEMIDE [Concomitant]
     Indication: CARDIAC FAILURE
  3. METOLAZONE [Concomitant]
     Indication: CARDIAC FAILURE

REACTIONS (2)
  - CARDIAC FAILURE [None]
  - RENAL FAILURE [None]
